FAERS Safety Report 22032082 (Version 1)
Quarter: 2023Q1

REPORT INFORMATION
  Report Type: Other
  Country: PK (occurrence: None)
  Receive Date: 20230224
  Receipt Date: 20230224
  Transmission Date: 20230417
  Serious: Yes (Death)
  Sender: FDA-Public Use
  Company Number: PK-ROCHE-3291525

PATIENT
  Age: 34 Year
  Sex: Female

DRUGS (2)
  1. HERCEPTIN [Suspect]
     Active Substance: TRASTUZUMAB
     Indication: Breast cancer metastatic
     Dosage: TOTAL NUMBER OF CYCLES ADMINISTERED = 02
     Route: 058
     Dates: start: 20230102, end: 20230126
  2. PERJETA [Suspect]
     Active Substance: PERTUZUMAB
     Indication: Breast cancer metastatic
     Dosage: TOTAL NUMBER OF CYCLES ADMINISTERED = 02
     Route: 042
     Dates: start: 20230102, end: 20230126

REACTIONS (4)
  - Asthenia [Fatal]
  - Vomiting [Unknown]
  - Mouth ulceration [Unknown]
  - Eating disorder [Unknown]

NARRATIVE: CASE EVENT DATE: 20230203
